FAERS Safety Report 8087973-3 (Version None)
Quarter: 2012Q1

REPORT INFORMATION
  Report Type: 
  Country: None (occurrence: None)
  Receive Date: 20120130
  Receipt Date: 20120125
  Transmission Date: 20120608
  Serious: Yes (Other)
  Sender: FDA-Public Use
  Company Number: US-ASTRAZENECA-2011SE62619

PATIENT
  Age: 53 Year
  Sex: Male

DRUGS (2)
  1. NEXIUM [Suspect]
     Indication: DRUG TOXICITY PROPHYLAXIS
     Route: 048
     Dates: start: 20060101
  2. PRILOSEC [Suspect]
     Route: 048

REACTIONS (5)
  - OFF LABEL USE [None]
  - WRONG DRUG ADMINISTERED [None]
  - DRUG INEFFECTIVE [None]
  - LEUKAEMIA [None]
  - NEOPLASM MALIGNANT [None]
